FAERS Safety Report 8612869-5 (Version None)
Quarter: 2012Q3

REPORT INFORMATION
  Report Type: 
  Country: None (occurrence: None)
  Receive Date: 20120822
  Receipt Date: 20110824
  Transmission Date: 20120928
  Serious: No
  Sender: FDA-Public Use
  Company Number: US-ASTRAZENECA-2011SE41098

PATIENT
  Age: 79 Year
  Sex: Female

DRUGS (1)
  1. SYMBICORT [Suspect]
     Dosage: 160/4.5 MCG, 120 INHALATIONS, 2 PUFFS BID, 1 UNIT
     Route: 055
     Dates: start: 20110101

REACTIONS (3)
  - INCREASED UPPER AIRWAY SECRETION [None]
  - DRUG DOSE OMISSION [None]
  - COUGH [None]
